FAERS Safety Report 9408314 (Version 1)
Quarter: 2013Q3

REPORT INFORMATION
  Report Type: Report from Study
  Country: DE (occurrence: DE)
  Receive Date: 20130718
  Receipt Date: 20130718
  Transmission Date: 20140515
  Serious: Yes (Hospitalization, Other)
  Sender: FDA-Public Use
  Company Number: DE-ROCHE-718561

PATIENT
  Age: 27 Year
  Sex: Male
  Weight: 68 kg

DRUGS (5)
  1. PEG-INTERFERON ALFA 2A [Suspect]
     Indication: CHRONIC HEPATITIS C
     Route: 058
     Dates: start: 20100727, end: 20100831
  2. RIBAVIRIN [Suspect]
     Indication: CHRONIC HEPATITIS C
     Dosage: DAILY
     Route: 048
     Dates: start: 20100727, end: 20100903
  3. MIRTAZAPIN [Concomitant]
     Indication: DEPRESSION
     Route: 065
  4. CITALOPRAM [Concomitant]
     Indication: DEPRESSION
     Route: 065
  5. DOMINAL FORTE [Concomitant]
     Indication: SLEEP DISORDER
     Route: 065

REACTIONS (3)
  - Groin abscess [Unknown]
  - Depression [Not Recovered/Not Resolved]
  - Substance use [Not Recovered/Not Resolved]
